FAERS Safety Report 10178630 (Version 1)
Quarter: 2014Q2

REPORT INFORMATION
  Report Type: Spontaneous
  Country: US (occurrence: None)
  Receive Date: 20140516
  Receipt Date: 20140516
  Transmission Date: 20141212
  Serious: Yes (Other)
  Sender: FDA-Public Use
  Company Number: None

PATIENT
  Age: 76 Year
  Sex: Female
  Weight: 77.11 kg

DRUGS (8)
  1. XARELTO [Suspect]
     Indication: THROMBOSIS
     Dosage: 10 MG, 1 PILL FOR 10 DAYS, 1 DAY, BY MOUTH
     Route: 048
     Dates: start: 20140207, end: 20140214
  2. ALMOLODPINE [Concomitant]
  3. BESYLACL, 10 MG [Concomitant]
  4. LORSEMIDE 5 MG [Concomitant]
  5. LAXANOPOST OP 0.005% [Concomitant]
  6. VIT [Concomitant]
  7. VIT D3 [Concomitant]
  8. MAGNESIUM + CAL [Concomitant]

REACTIONS (3)
  - Thrombosis [None]
  - Incision site haemorrhage [None]
  - Impaired healing [None]
